FAERS Safety Report 24618516 (Version 2)
Quarter: 2025Q1

REPORT INFORMATION
  Report Type: Report from Study
  Country: AE (occurrence: AE)
  Receive Date: 20241114
  Receipt Date: 20250103
  Transmission Date: 20250408
  Serious: Yes (Hospitalization, Other)
  Sender: ALEXION PHARMACEUTICALS
  Company Number: AE-AstraZeneca-CH-00742112A

PATIENT

DRUGS (4)
  1. ACALABRUTINIB [Suspect]
     Active Substance: ACALABRUTINIB
     Indication: Chronic lymphocytic leukaemia
     Dosage: 100 MILLIGRAM, Q12H
  2. ACALABRUTINIB [Suspect]
     Active Substance: ACALABRUTINIB
     Dosage: 100 MILLIGRAM, Q12H
     Route: 048
  3. ACALABRUTINIB [Suspect]
     Active Substance: ACALABRUTINIB
     Dosage: 100 MILLIGRAM, Q12H
  4. ACALABRUTINIB [Suspect]
     Active Substance: ACALABRUTINIB
     Dosage: 100 MILLIGRAM, Q12H
     Route: 048

REACTIONS (1)
  - Immunodeficiency [Recovered/Resolved]
